FAERS Safety Report 6906073-6 (Version None)
Quarter: 2010Q3

REPORT INFORMATION
  Report Type: 
  Country: None (occurrence: None)
  Receive Date: 20100803
  Receipt Date: 20100803
  Transmission Date: 20110219
  Serious: No
  Sender: FDA-Public Use
  Company Number: None

PATIENT
  Sex: Female

DRUGS (1)
  1. CLIMARA [Suspect]
     Dosage: 0.025 MG, APPLY PATCH AND WEAR FOR 1 WEEK, THEN CHANGE; TOPICALLY
     Route: 061

REACTIONS (1)
  - PRODUCT ADHESION ISSUE [None]
